FAERS Safety Report 22891702 (Version 5)
Quarter: 2025Q3

REPORT INFORMATION
  Report Type: Spontaneous
  Country: US (occurrence: US)
  Receive Date: 20230901
  Receipt Date: 20250715
  Transmission Date: 20251021
  Serious: Yes (Hospitalization, Other)
  Sender: AMGEN
  Company Number: US-AMGEN-USASP2023152693

PATIENT
  Age: 67 Year
  Sex: Female
  Weight: 74.422 kg

DRUGS (37)
  1. NPLATE [Suspect]
     Active Substance: ROMIPLOSTIM
     Indication: Immune thrombocytopenia
     Dosage: 5 MICROGRAM/KG , QWK
     Route: 058
     Dates: start: 20230404
  2. NPLATE [Suspect]
     Active Substance: ROMIPLOSTIM
     Dosage: 6 MICROGRAM, QWK
     Route: 065
  3. NPLATE [Suspect]
     Active Substance: ROMIPLOSTIM
     Dosage: 8 MICROGRAM, QWK
     Route: 065
  4. NPLATE [Suspect]
     Active Substance: ROMIPLOSTIM
     Dosage: 10 MICROGRAM/KG, QWK
     Route: 065
  5. NPLATE [Suspect]
     Active Substance: ROMIPLOSTIM
     Route: 065
     Dates: start: 20230419
  6. NPLATE [Suspect]
     Active Substance: ROMIPLOSTIM
     Route: 065
     Dates: start: 20230421
  7. NPLATE [Suspect]
     Active Substance: ROMIPLOSTIM
     Route: 065
     Dates: start: 20230426
  8. NPLATE [Suspect]
     Active Substance: ROMIPLOSTIM
     Route: 065
     Dates: start: 20230503
  9. NPLATE [Suspect]
     Active Substance: ROMIPLOSTIM
     Route: 065
     Dates: start: 20230607
  10. NPLATE [Suspect]
     Active Substance: ROMIPLOSTIM
     Route: 065
     Dates: start: 20230712
  11. NPLATE [Suspect]
     Active Substance: ROMIPLOSTIM
     Dosage: 10 MICROGRAM/KILOGRAM, QWK
     Route: 065
     Dates: start: 20230719
  12. CALCIUM [Concomitant]
     Active Substance: CALCIUM
  13. VITAMIN D [Concomitant]
     Active Substance: VITAMIN D NOS
  14. ATORVASTATIN [Concomitant]
     Active Substance: ATORVASTATIN
     Indication: Blood cholesterol abnormal
     Dosage: 20 MILLIGRAM, QD
  15. ATORVASTATIN [Concomitant]
     Active Substance: ATORVASTATIN
     Indication: Product used for unknown indication
  16. DEXAMETHASONE [Concomitant]
     Active Substance: DEXAMETHASONE
     Indication: Immune thrombocytopenia
     Dosage: 40 MILLIGRAM, QID
     Dates: start: 20230322
  17. PREDNISONE [Concomitant]
     Active Substance: PREDNISONE
     Indication: Immune thrombocytopenia
     Dosage: 70 MILLIGRAM, QD
     Dates: start: 20230131
  18. PREDNISONE [Concomitant]
     Active Substance: PREDNISONE
     Dosage: 45 MILLIGRAM, QD
     Dates: start: 20230419
  19. PREDNISONE [Concomitant]
     Active Substance: PREDNISONE
     Dates: start: 20230421
  20. PREDNISONE [Concomitant]
     Active Substance: PREDNISONE
     Dates: start: 20230421
  21. PREDNISONE [Concomitant]
     Active Substance: PREDNISONE
     Dates: start: 20230503
  22. PREDNISONE [Concomitant]
     Active Substance: PREDNISONE
     Dates: start: 20230509
  23. PREDNISONE [Concomitant]
     Active Substance: PREDNISONE
     Dosage: 15 MILLIGRAM, QOD
     Dates: start: 20230524
  24. METHYLPREDNISOLONE [Concomitant]
     Active Substance: METHYLPREDNISOLONE
     Indication: Immune thrombocytopenia
  25. HEPATITIS B VIRUS VACCINE [Concomitant]
     Active Substance: HEPATITIS B VIRUS VACCINE
     Dates: start: 20230717
  26. HEPATITIS B VIRUS VACCINE [Concomitant]
     Active Substance: HEPATITIS B VIRUS VACCINE
     Dates: start: 20230821
  27. AMMONIUM LACTATE [Concomitant]
     Active Substance: AMMONIUM LACTATE
     Indication: Dry skin
  28. BETAMETHASONE VALERATE [Concomitant]
     Active Substance: BETAMETHASONE VALERATE
     Indication: Pruritus
  29. BETAMETHASONE VALERATE [Concomitant]
     Active Substance: BETAMETHASONE VALERATE
     Indication: Rash
  30. FLUOCINONIDE [Concomitant]
     Active Substance: FLUOCINONIDE
     Indication: Pruritus
     Dosage: APPLY ON SCLAP AND EAR, BID
  31. TACROLIMUS [Concomitant]
     Active Substance: TACROLIMUS
     Indication: Pruritus
     Dosage: AFFECTED AREA, BID
  32. TACROLIMUS [Concomitant]
     Active Substance: TACROLIMUS
     Indication: Rash
  33. CALCIUM CARBONATE [Concomitant]
     Active Substance: CALCIUM CARBONATE
     Indication: Gastrooesophageal reflux disease
     Dosage: 1250 MILLIGRAM, QID
  34. CALCIUM CARBONATE\CHOLECALCIFEROL [Concomitant]
     Active Substance: CALCIUM CARBONATE\CHOLECALCIFEROL
  35. SYSTANE (HYPROMELLOSE 2910 (4000 MPA.S)) [Concomitant]
     Active Substance: HYPROMELLOSE 2910 (4000 MPA.S)
  36. SODIUM CHLORIDE [Concomitant]
     Active Substance: SODIUM CHLORIDE
  37. RITUXAN [Concomitant]
     Active Substance: RITUXIMAB
     Indication: Product used for unknown indication

REACTIONS (8)
  - Platelet count decreased [Unknown]
  - Ocular hypertension [Unknown]
  - Abdominal pain [Unknown]
  - Therapeutic product effect decreased [Unknown]
  - White blood cell count abnormal [Unknown]
  - Platelet count increased [Unknown]
  - Contusion [Unknown]
  - Petechiae [Unknown]

NARRATIVE: CASE EVENT DATE: 20230412
